FAERS Safety Report 6321563-5 (Version None)
Quarter: 2009Q3

REPORT INFORMATION
  Report Type: 
  Country: None (occurrence: None)
  Receive Date: 20090824
  Receipt Date: 20090812
  Transmission Date: 20100115
  Serious: Yes (Hospitalization)
  Sender: FDA-Public Use
  Company Number: ES-RANBAXY-2009RR-26308

PATIENT
  Age: 44 Year
  Sex: Male

DRUGS (8)
  1. EFAVIRENZ [Suspect]
     Indication: HIV INFECTION
  2. LAMIVUDINE [Suspect]
     Indication: HIV INFECTION
  3. ZIDOVUDINE [Suspect]
     Indication: HIV INFECTION
  4. AZIDOTHYMIDINE [Suspect]
     Indication: HIV INFECTION
  5. AMOXICILLIN AND CLAVULANATE POTASSIUM [Concomitant]
     Indication: HAEMOPHILUS INFECTION
  6. RIFAMPICIN [Concomitant]
  7. CLARITHROMYCIN [Concomitant]
  8. COTRIM [Concomitant]

REACTIONS (1)
  - IMMUNE RECONSTITUTION SYNDROME [None]
